FAERS Safety Report 8783243 (Version 1)
Quarter: 2012Q4

REPORT INFORMATION
  Report Type: 
  Country: US (occurrence: US)
  Receive Date: 20120913
  Receipt Date: 20120913
  Transmission Date: 20130627
  Serious: No
  Sender: FDA-Public Use
  Company Number: US-VERTEX PHARMACEUTICAL INC.-AE-2012-008923

PATIENT
  Age: 32 None
  Sex: Female

DRUGS (3)
  1. INCIVEK [Suspect]
     Indication: HEPATITIS C
     Route: 048
  2. COPEGUS [Concomitant]
     Indication: HEPATITIS C
  3. PEGINTRON [Concomitant]
     Indication: HEPATITIS C
     Route: 058

REACTIONS (5)
  - Dyspnoea [Not Recovered/Not Resolved]
  - Muscle spasms [Not Recovered/Not Resolved]
  - Asthenia [Not Recovered/Not Resolved]
  - Nausea [Not Recovered/Not Resolved]
  - Vomiting [Not Recovered/Not Resolved]
